FAERS Safety Report 8085979-1 (Version None)
Quarter: 2012Q1

REPORT INFORMATION
  Report Type: 
  Country: None (occurrence: None)
  Receive Date: 20120128
  Receipt Date: 20110413
  Transmission Date: 20120608
  Serious: No
  Sender: FDA-Public Use
  Company Number: US-ABBOTT-11P-163-0718869-00

PATIENT
  Age: 51 Year
  Sex: Female

DRUGS (19)
  1. ASPIRIN [Concomitant]
     Indication: PROPHYLAXIS
     Route: 048
  2. NEXIUM [Concomitant]
     Indication: HIATUS HERNIA
  3. TRICOR [Concomitant]
     Indication: BLOOD CHOLESTEROL INCREASED
     Route: 048
  4. ALLEGRA [Concomitant]
     Indication: PROPHYLAXIS
     Route: 048
     Dates: start: 20070101
  5. HUMIRA [Suspect]
  6. ZOLOFT [Concomitant]
     Indication: STRESS
  7. STOOL SOFTENER [Concomitant]
     Indication: PRODUCT USED FOR UNKNOWN INDICATION
     Route: 048
  8. NIASPAN [Concomitant]
     Indication: PRODUCT USED FOR UNKNOWN INDICATION
     Dosage: AT BEDTIME
     Route: 048
     Dates: start: 20110101
  9. HUMIRA [Suspect]
     Indication: PSORIASIS
     Dates: start: 20091201
  10. ZOLOFT [Concomitant]
     Indication: DRUG THERAPY
     Route: 048
     Dates: start: 20070101
  11. LOVAZA [Concomitant]
     Indication: PRODUCT USED FOR UNKNOWN INDICATION
  12. FISH OIL [Concomitant]
     Indication: PRODUCT USED FOR UNKNOWN INDICATION
     Dates: start: 20110101
  13. ESTRACE [Concomitant]
     Indication: MENOPAUSE
     Route: 048
     Dates: start: 20090101
  14. NEXIUM [Concomitant]
     Indication: GASTROOESOPHAGEAL REFLUX DISEASE
     Route: 048
     Dates: start: 19960101
  15. SYNTHROID [Concomitant]
     Indication: THYROID THERAPY
     Route: 048
     Dates: start: 20010101
  16. SIMVASTATIN [Concomitant]
     Indication: PRODUCT USED FOR UNKNOWN INDICATION
     Route: 048
  17. ACIDOPHILUS [Concomitant]
     Indication: PROPHYLAXIS
     Route: 048
     Dates: start: 20100101
  18. ZANTAC [Concomitant]
     Indication: PROPHYLAXIS
     Route: 048
     Dates: start: 20060101
  19. SINGULAIR [Concomitant]
     Indication: SWELLING
     Route: 048
     Dates: start: 20070101

REACTIONS (1)
  - PSORIASIS [None]
